FAERS Safety Report 6634763-1 (Version None)
Quarter: 2010Q1

REPORT INFORMATION
  Report Type: 
  Country: None (occurrence: None)
  Receive Date: 20100315
  Receipt Date: 20100310
  Transmission Date: 20100710
  Serious: Yes (Hospitalization, Other)
  Sender: FDA-Public Use
  Company Number: US-MERCK-0912USA00109

PATIENT
  Age: 59 Year
  Sex: Male

DRUGS (2)
  1. FOSAMAX [Suspect]
     Indication: OSTEOPOROSIS
     Route: 048
     Dates: start: 20040405, end: 20080601
  2. ACTONEL [Suspect]
     Indication: OSTEOPOROSIS
     Route: 048
     Dates: start: 20030414, end: 20040405

REACTIONS (11)
  - BASAL CELL CARCINOMA [None]
  - CELLULITIS [None]
  - CYST [None]
  - DRUG HYPERSENSITIVITY [None]
  - DRUG INEFFECTIVE [None]
  - HYPERTENSION [None]
  - OSTEOMYELITIS [None]
  - OSTEONECROSIS [None]
  - SINUS POLYP [None]
  - TOOTH DISORDER [None]
  - TRISMUS [None]
